FAERS Safety Report 10763149 (Version 1)
Quarter: 2015Q1

REPORT INFORMATION
  Report Type: Spontaneous
  Country: US (occurrence: None)
  Receive Date: 20150128
  Receipt Date: 20150128
  Transmission Date: 20150721
  Serious: Yes (Hospitalization)
  Sender: FDA-Public Use
  Company Number: 1341140

PATIENT
  Age: 36 Year
  Sex: Male
  Weight: 115.21 kg

DRUGS (11)
  1. MARINOL [Concomitant]
     Active Substance: DRONABINOL
  2. ATORVASTATIN [Concomitant]
     Active Substance: ATORVASTATIN
  3. NORCO (HYDROCODONE TARTRATE) [Concomitant]
  4. PRILOSEC (OMEPRAZOLE) [Concomitant]
     Active Substance: OMEPRAZOLE MAGNESIUM
  5. ZOFRAN (ONDANSETRON) [Concomitant]
  6. EMEND [Concomitant]
     Active Substance: APREPITANT
  7. LYRICA [Concomitant]
     Active Substance: PREGABALIN
  8. FENOFIBRATE. [Concomitant]
     Active Substance: FENOFIBRATE
  9. LEVOXYL (LEVOTHYROXINE SODIUM) [Concomitant]
  10. RITUXIMAB (RITUXIMAB) [Suspect]
     Active Substance: RITUXIMAB
     Indication: NON-HODGKIN^S LYMPHOMA
     Route: 042
     Dates: start: 20140117
  11. Y-90 ZEVALIN (IBRITUMOMAB TIUXETAN, YTTRIUM-90) (INJECTION) [Suspect]
     Active Substance: IBRITUMOMAB TIUXETAN\YTTRIUM Y-90
     Indication: NON-HODGKIN^S LYMPHOMA
     Route: 042
     Dates: start: 20140117

REACTIONS (2)
  - Febrile neutropenia [None]
  - Device related infection [None]

NARRATIVE: CASE EVENT DATE: 20140122
